FAERS Safety Report 18149590 (Version 1)
Quarter: 2020Q3

REPORT INFORMATION
  Report Type: Spontaneous
  Country: GT (occurrence: GT)
  Receive Date: 20200813
  Receipt Date: 20200813
  Transmission Date: 20201103
  Serious: Yes (Other)
  Sender: FDA-Public Use
  Company Number: None

PATIENT
  Age: 12 Month
  Sex: Female
  Weight: 58.97 kg

DRUGS (1)
  1. RIVOTRIL [Suspect]
     Active Substance: CLONAZEPAM
     Dosage: ?          OTHER FREQUENCY: 2 CAPSULES AT BEDTIME;?
     Route: 048

REACTIONS (4)
  - Hallucination, auditory [None]
  - Nightmare [None]
  - Abnormal dreams [None]
  - Insomnia [None]

NARRATIVE: CASE EVENT DATE: 20200813
